FAERS Safety Report 18329346 (Version 1)
Quarter: 2020Q3

REPORT INFORMATION
  Report Type: Spontaneous
  Country: US (occurrence: US)
  Receive Date: 20200929
  Receipt Date: 20200929
  Transmission Date: 20201103
  Serious: Yes (Other)
  Sender: FDA-Public Use
  Company Number: None

PATIENT
  Age: 69 Year
  Sex: Female

DRUGS (1)
  1. KISQALI [Suspect]
     Active Substance: RIBOCICLIB
     Indication: BREAST CANCER
     Route: 048
     Dates: start: 202006

REACTIONS (9)
  - Syncope [None]
  - Nausea [None]
  - Vomiting [None]
  - Pelvic discomfort [None]
  - Decreased appetite [None]
  - Asthenia [None]
  - Headache [None]
  - Abdominal distension [None]
  - Metastases to central nervous system [None]

NARRATIVE: CASE EVENT DATE: 20200905
